FAERS Safety Report 23116082 (Version 1)
Quarter: 2023Q4

REPORT INFORMATION
  Report Type: Spontaneous
  Country: US (occurrence: None)
  Receive Date: 20231026
  Receipt Date: 20231026
  Transmission Date: 20240110
  Serious: Yes (Hospitalization)
  Sender: FDA-Public Use
  Company Number: None

PATIENT
  Age: 69 Year
  Sex: Female

DRUGS (15)
  1. AMBRISENTAN [Suspect]
     Active Substance: AMBRISENTAN
     Indication: Pulmonary arterial hypertension
     Dosage: FREQUENCY : DAILY;?
     Route: 048
     Dates: start: 20160421
  2. VELETRI [Concomitant]
     Active Substance: EPOPROSTENOL
  3. SUCRALFATE [Concomitant]
     Active Substance: SUCRALFATE
  4. OXYCODONE [Concomitant]
     Active Substance: OXYCODONE
  5. CELLCEPT [Concomitant]
     Active Substance: MYCOPHENOLATE MOFETIL
  6. NORTRIPTYLINE [Concomitant]
     Active Substance: NORTRIPTYLINE
  7. LEVOTHYROXINE [Concomitant]
     Active Substance: LEVOTHYROXINE
  8. PANTOPRAZOLE [Concomitant]
     Active Substance: PANTOPRAZOLE
  9. Oxygen intranasal [Concomitant]
  10. MELATONIN [Concomitant]
     Active Substance: MELATONIN
  11. ALBUTEROL SULFATE [Concomitant]
     Active Substance: ALBUTEROL SULFATE
  12. FUROSEMIDE [Concomitant]
     Active Substance: FUROSEMIDE
  13. Benxonatate [Concomitant]
  14. FERROUS SULFATE [Concomitant]
     Active Substance: FERROUS SULFATE
  15. Mupirocin top oint [Concomitant]

REACTIONS (1)
  - Upper gastrointestinal haemorrhage [None]

NARRATIVE: CASE EVENT DATE: 20231010
